FAERS Safety Report 14789883 (Version 3)
Quarter: 2018Q2

REPORT INFORMATION
  Report Type: Spontaneous
  Country: US (occurrence: US)
  Receive Date: 20180423
  Receipt Date: 20180619
  Transmission Date: 20180711
  Serious: No
  Sender: FDA-Public Use
  Company Number: US-PFIZER INC-2018164212

PATIENT
  Age: 76 Year
  Sex: Female

DRUGS (1)
  1. EUCRISA [Suspect]
     Active Substance: CRISABOROLE
     Indication: DERMATITIS
     Dosage: UNK

REACTIONS (3)
  - Drug ineffective [Unknown]
  - Papule [Not Recovered/Not Resolved]
  - Dry skin [Not Recovered/Not Resolved]
